FAERS Safety Report 24719797 (Version 1)
Quarter: 2024Q4

REPORT INFORMATION
  Report Type: Report from Study
  Country: ZA (occurrence: ZA)
  Receive Date: 20241211
  Receipt Date: 20241211
  Transmission Date: 20250115
  Serious: Yes (Other)
  Sender: ROCHE
  Company Number: ZA-ROCHE-10000148233

PATIENT
  Sex: Male

DRUGS (1)
  1. OCREVUS [Suspect]
     Active Substance: OCRELIZUMAB
     Indication: Primary progressive multiple sclerosis
     Dosage: THEREAFTER 600MG EVERY 6 MONTHS
     Route: 042
     Dates: start: 20211122

REACTIONS (4)
  - White matter lesion [Unknown]
  - Intervertebral disc space narrowing [Unknown]
  - Pituitary tumour benign [Unknown]
  - Meningioma [Unknown]
